FAERS Safety Report 15652019 (Version 3)
Quarter: 2020Q3

REPORT INFORMATION
  Report Type: Spontaneous
  Country: US (occurrence: US)
  Receive Date: 20181123
  Receipt Date: 20200902
  Transmission Date: 20201102
  Serious: Yes (Other)
  Sender: FDA-Public Use
  Company Number: US-GILEAD-2018-0375810

PATIENT
  Age: 51 Year
  Sex: Male
  Weight: 106.58 kg

DRUGS (16)
  1. VIREAD [Suspect]
     Active Substance: TENOFOVIR DISOPROXIL FUMARATE
     Indication: PRODUCT USED FOR UNKNOWN INDICATION
     Dosage: UNK
     Route: 048
     Dates: start: 2001, end: 2008
  2. ATRIPLA [Suspect]
     Active Substance: EFAVIRENZ\EMTRICITABINE\TENOFOVIR DISOPROXIL FUMARATE
     Indication: PRODUCT USED FOR UNKNOWN INDICATION
     Dosage: UNK
     Route: 048
     Dates: start: 2008, end: 2008
  3. MYRBETRIQ [Concomitant]
     Active Substance: MIRABEGRON
  4. MOBIC [Concomitant]
     Active Substance: MELOXICAM
  5. NORVIR [Concomitant]
     Active Substance: RITONAVIR
  6. GABAPENTIN. [Concomitant]
     Active Substance: GABAPENTIN
  7. TRIAMTERENE. [Concomitant]
     Active Substance: TRIAMTERENE
  8. CLOTRIMAZOLE. [Concomitant]
     Active Substance: CLOTRIMAZOLE
  9. STRIBILD [Suspect]
     Active Substance: COBICISTAT\ELVITEGRAVIR\EMTRICITABINE\TENOFOVIR DISOPROXIL FUMARATE
     Indication: PRODUCT USED FOR UNKNOWN INDICATION
     Dosage: UNK
     Route: 048
     Dates: start: 20140429, end: 20150317
  10. TRAMADOL. [Concomitant]
     Active Substance: TRAMADOL
  11. REYATAZ [Concomitant]
     Active Substance: ATAZANAVIR SULFATE
  12. TRIUMEQ [Concomitant]
     Active Substance: ABACAVIR SULFATE\DOLUTEGRAVIR SODIUM\LAMIVUDINE
  13. TAMSULOSIN [Concomitant]
     Active Substance: TAMSULOSIN
  14. DULOXETINE. [Concomitant]
     Active Substance: DULOXETINE
  15. TRUVADA [Suspect]
     Active Substance: EMTRICITABINE\TENOFOVIR DISOPROXIL FUMARATE
     Indication: PRODUCT USED FOR UNKNOWN INDICATION
     Dosage: UNK
     Route: 048
     Dates: start: 20081009, end: 20140312
  16. METOPROLOL TARTRATE. [Concomitant]
     Active Substance: METOPROLOL TARTRATE

REACTIONS (10)
  - Emotional distress [Unknown]
  - Bone density decreased [Unknown]
  - Pain [Unknown]
  - Hip arthroplasty [Unknown]
  - Economic problem [Unknown]
  - Chronic kidney disease [Not Recovered/Not Resolved]
  - Anhedonia [Unknown]
  - Osteopenia [Unknown]
  - Renal impairment [Unknown]
  - Anxiety [Unknown]

NARRATIVE: CASE EVENT DATE: 201412
